FAERS Safety Report 23223767 (Version 1)
Quarter: 2023Q4

REPORT INFORMATION
  Report Type: Spontaneous
  Country: US (occurrence: US)
  Receive Date: 20231124
  Receipt Date: 20231124
  Transmission Date: 20240110
  Serious: Yes (Other)
  Sender: FDA-Public Use
  Company Number: US-drreddys-SPO/USA/23/0187139

PATIENT
  Age: 58 Year
  Sex: Male

DRUGS (6)
  1. SIROLIMUS [Suspect]
     Active Substance: SIROLIMUS
     Indication: Immunosuppression
     Dosage: TARGET TROUGH 3-8 NG/ML
  2. TACROLIMUS [Suspect]
     Active Substance: TACROLIMUS
     Indication: Immunosuppression
     Dosage: LOWER DOSE
  3. TACROLIMUS [Suspect]
     Active Substance: TACROLIMUS
     Dosage: TARGET TROUGH 6-8 NG/ML
  4. PREDNISONE [Suspect]
     Active Substance: PREDNISONE
     Indication: Immunosuppression
  5. PREDNISONE [Suspect]
     Active Substance: PREDNISONE
  6. TOCILIZUMAB [Suspect]
     Active Substance: TOCILIZUMAB
     Indication: COVID-19 pneumonia

REACTIONS (1)
  - Polyomavirus-associated nephropathy [Unknown]

NARRATIVE: CASE EVENT DATE: 20200301
